FAERS Safety Report 10427666 (Version 1)
Quarter: 2014Q3

REPORT INFORMATION
  Report Type: Spontaneous
  Country: JP (occurrence: JP)
  Receive Date: 20140903
  Receipt Date: 20140903
  Transmission Date: 20150326
  Serious: Yes (Death, Other)
  Sender: FDA-Public Use
  Company Number: PHHY2010JP096585

PATIENT
  Sex: Male

DRUGS (2)
  1. GLIVEC [Suspect]
     Active Substance: IMATINIB MESYLATE
     Indication: GASTROINTESTINAL STROMAL TUMOUR
     Dosage: 300 MG, DAILY
     Dates: start: 20101101
  2. GLIVEC [Suspect]
     Active Substance: IMATINIB MESYLATE
     Dosage: 400 MG, UNK

REACTIONS (9)
  - C-reactive protein increased [Unknown]
  - Pyrexia [Unknown]
  - Gastrointestinal stromal tumour [Fatal]
  - Thrombocytopenia [Recovered/Resolved]
  - Lymphocyte count increased [Unknown]
  - Tuberculosis [Unknown]
  - Neutropenia [Recovered/Resolved]
  - Pleural effusion [Unknown]
  - Disease progression [Fatal]
